FAERS Safety Report 22594763 (Version 3)
Quarter: 2023Q2

REPORT INFORMATION
  Report Type: Spontaneous
  Country: US (occurrence: US)
  Receive Date: 20230613
  Receipt Date: 20230616
  Transmission Date: 20230722
  Serious: No
  Sender: FDA-Public Use
  Company Number: US-SANOFI-01649518

PATIENT
  Age: 64 Year
  Sex: Male

DRUGS (1)
  1. LANTUS SOLOSTAR [Suspect]
     Active Substance: INSULIN GLARGINE
     Indication: Diabetes mellitus
     Dosage: 10 IU
     Dates: start: 2022

REACTIONS (3)
  - Glycosylated haemoglobin increased [Unknown]
  - Device issue [Unknown]
  - Product dispensing issue [Unknown]
